FAERS Safety Report 4497428-0 (Version None)
Quarter: 2004Q4

REPORT INFORMATION
  Report Type: 
  Country: None (occurrence: None)
  Receive Date: 20041110
  Receipt Date: 20041104
  Transmission Date: 20050328
  Serious: Yes (Death)
  Sender: FDA-Public Use
  Company Number: PHBS2004JP14795

PATIENT
  Age: 83 Year
  Sex: Male

DRUGS (6)
  1. VOLTAREN [Suspect]
     Indication: PYREXIA
     Dosage: 25 MG, BID
     Route: 054
     Dates: start: 20030101, end: 20030101
  2. FLUOROURACIL [Concomitant]
     Indication: BLADDER CANCER
     Route: 048
  3. METHOTREXATE [Concomitant]
     Indication: BLADDER CANCER
     Dosage: 50 MG/DAY
     Route: 042
  4. FARMORUBICIN [Concomitant]
     Indication: BLADDER CANCER
     Dosage: 80 MG/DAY
     Route: 042
  5. CISPLATIN [Concomitant]
     Indication: BLADDER CANCER
     Dosage: 160 MG/DAY
     Route: 042
  6. FILGRASTIM [Concomitant]

REACTIONS (4)
  - BLOOD PRESSURE DECREASED [None]
  - NEUTROPENIC COLITIS [None]
  - RENAL FAILURE ACUTE [None]
  - SEPTIC SHOCK [None]
